FAERS Safety Report 4498791-7 (Version None)
Quarter: 2004Q3

REPORT INFORMATION
  Report Type: 
  Country: None (occurrence: None)
  Receive Date: 20040927
  Receipt Date: 20040622
  Transmission Date: 20050211
  Serious: No
  Sender: FDA-Public Use
  Company Number: USA040670374

PATIENT
  Age: 11 Year
  Sex: Female
  Weight: 39 kg

DRUGS (4)
  1. STRATTERA [Suspect]
     Indication: ATTENTION DEFICIT/HYPERACTIVITY DISORDER
     Dosage: 60 MG AT BEDTIME
     Dates: start: 20030101
  2. ALLEGRA [Concomitant]
  3. FLONASE [Concomitant]
  4. SYNTHROID [Concomitant]

REACTIONS (4)
  - INSOMNIA [None]
  - MIDDLE INSOMNIA [None]
  - PRESCRIBED OVERDOSE [None]
  - SOMNOLENCE [None]
